FAERS Safety Report 7337473-0 (Version None)
Quarter: 2011Q1

REPORT INFORMATION
  Report Type: 
  Country: None (occurrence: None)
  Receive Date: 20110224
  Receipt Date: 20110216
  Transmission Date: 20110831
  Serious: Yes (Hospitalization)
  Sender: FDA-Public Use
  Company Number: 2010SP054447

PATIENT
  Age: 37 Year
  Sex: Female
  Weight: 81.6475 kg

DRUGS (3)
  1. MOTRIN [Concomitant]
  2. NUVARING [Suspect]
     Indication: PREMENSTRUAL SYNDROME
     Dates: start: 20080602, end: 20081018
  3. NUVARING [Suspect]
     Indication: CONTRACEPTION
     Dates: start: 20080602, end: 20081018

REACTIONS (7)
  - UTERINE LEIOMYOMA [None]
  - MUSCLE SPASMS [None]
  - INTERNATIONAL NORMALISED RATIO DECREASED [None]
  - LUNG NEOPLASM [None]
  - PULMONARY EMBOLISM [None]
  - PANIC ATTACK [None]
  - NAUSEA [None]
